FAERS Safety Report 8255422-8 (Version None)
Quarter: 2012Q2

REPORT INFORMATION
  Report Type: 
  Country: None (occurrence: None)
  Receive Date: 20120403
  Receipt Date: 20120327
  Transmission Date: 20120825
  Serious: Yes (Other)
  Sender: FDA-Public Use
  Company Number: JP-ASTELLAS-2011US006659

PATIENT
  Sex: Female

DRUGS (7)
  1. AMLODIPINE [Concomitant]
     Indication: HYPERTENSION
     Dosage: 2.5 MG, UID/QD
     Route: 048
     Dates: start: 20111216
  2. ERLOTINIB HYDROCHLORIDE [Suspect]
     Dosage: 100 MG, UID/QD
     Route: 048
     Dates: start: 20110907, end: 20120127
  3. GEMCITABINE HYDROCHLORIDE [Concomitant]
     Indication: ADENOCARCINOMA PANCREAS
     Dosage: 1000 MG/M2, WEEKLY 3 WEEKS ON 1 WEEK OFF
     Route: 041
     Dates: start: 20110729, end: 20110812
  4. GEMCITABINE HYDROCHLORIDE [Concomitant]
     Dosage: 1000 MG/M2, WEEKLY 3 WEEKS ON 1 WEEK OFF
     Route: 042
  5. ERLOTINIB HYDROCHLORIDE [Suspect]
     Indication: ADENOCARCINOMA PANCREAS
     Dosage: 100 MG, UID/QD
     Route: 048
     Dates: start: 20110729, end: 20110825
  6. GEMCITABINE HYDROCHLORIDE [Concomitant]
     Dosage: 1000 MG/M2, WEEKLY 3 WEEKS ON 1 WEEK OFF
     Route: 041
     Dates: start: 20110902, end: 20111222
  7. GEMCITABINE HYDROCHLORIDE [Concomitant]
     Dosage: 1000 MG/M2, WEEKLY 3 WEEKS ON 1 WEEK OFF
     Route: 042
     Dates: start: 20120106, end: 20120120

REACTIONS (5)
  - PYREXIA [None]
  - DISEASE PROGRESSION [None]
  - DERMATITIS ACNEIFORM [None]
  - INFECTION [None]
  - ANAEMIA [None]
